FAERS Safety Report 11319132 (Version 2)
Quarter: 2015Q4

REPORT INFORMATION
  Report Type: Spontaneous
  Country: US (occurrence: US)
  Receive Date: 20150729
  Receipt Date: 20151130
  Transmission Date: 20160304
  Serious: Yes (Hospitalization)
  Sender: FDA-Public Use
  Company Number: US-ACTELION-A-NJ2015-120976

PATIENT
  Age: 51 Year
  Sex: Female

DRUGS (8)
  1. OPSUMIT [Suspect]
     Active Substance: MACITENTAN
     Indication: PULMONARY ARTERIAL HYPERTENSION
     Dosage: 10 MG, QD
     Route: 048
     Dates: start: 20150425
  2. LYRICA [Concomitant]
     Active Substance: PREGABALIN
  3. MIDODRINE [Concomitant]
     Active Substance: MIDODRINE
  4. ZOLOFT [Concomitant]
     Active Substance: SERTRALINE HYDROCHLORIDE
  5. TREPROSTINIL DIOLAMIN [Concomitant]
     Active Substance: TREPROSTINIL DIOLAMINE
     Dosage: 0.375 MG, UNK
     Dates: start: 20150516
  6. PROAIR HFA [Concomitant]
     Active Substance: ALBUTEROL SULFATE
  7. CYCLOBENZAPRINE HCL [Concomitant]
     Active Substance: CYCLOBENZAPRINE HYDROCHLORIDE
  8. CARVEDILOL. [Concomitant]
     Active Substance: CARVEDILOL

REACTIONS (5)
  - Localised infection [Recovering/Resolving]
  - Hypotension [Recovering/Resolving]
  - Chest pain [Recovered/Resolved]
  - Dizziness [Recovering/Resolving]
  - Haemodialysis [Recovering/Resolving]

NARRATIVE: CASE EVENT DATE: 20151113
